FAERS Safety Report 19646717 (Version 1)
Quarter: 2021Q3

REPORT INFORMATION
  Report Type: Spontaneous
  Country: US (occurrence: US)
  Receive Date: 20210802
  Receipt Date: 20210802
  Transmission Date: 20211014
  Serious: No
  Sender: FDA-Public Use
  Company Number: US-EYEPOINT PHARMACEUTICALS, INC.-US-EYP-21-00053

PATIENT
  Age: 64 Year
  Sex: Female

DRUGS (3)
  1. YUTIQ [Suspect]
     Active Substance: FLUOCINOLONE ACETONIDE
     Indication: UVEITIS
     Dosage: RIGHT EYE/OD
     Route: 031
     Dates: start: 20210503, end: 20210503
  2. YUTIQ [Suspect]
     Active Substance: FLUOCINOLONE ACETONIDE
     Indication: MACULAR OEDEMA
     Dosage: RIGHT EYE/OD
     Route: 031
     Dates: start: 20210422, end: 20210422
  3. OZURDEX [Concomitant]
     Active Substance: DEXAMETHASONE
     Indication: UVEITIS
     Route: 031

REACTIONS (3)
  - Product quality issue [Unknown]
  - Product dose omission issue [Unknown]
  - No adverse event [Unknown]

NARRATIVE: CASE EVENT DATE: 20210422
